FAERS Safety Report 13433215 (Version 14)
Quarter: 2018Q2

REPORT INFORMATION
  Report Type: Spontaneous
  Country: US (occurrence: US)
  Receive Date: 20170412
  Receipt Date: 20180612
  Transmission Date: 20180711
  Serious: Yes (Hospitalization)
  Sender: FDA-Public Use
  Company Number: US-ACTELION-A-NJ2017-152375

PATIENT
  Age: 64 Year
  Sex: Female

DRUGS (20)
  1. REMODULIN [Suspect]
     Active Substance: TREPROSTINIL
     Dosage: 0.082 ML/HR, UNK
     Route: 042
  2. PREDNISONE. [Concomitant]
     Active Substance: PREDNISONE
     Dosage: 20 MG, QD
     Dates: start: 201703
  3. CITALOPRAM [Concomitant]
     Active Substance: CITALOPRAM HYDROBROMIDE
  4. OPSUMIT [Suspect]
     Active Substance: MACITENTAN
     Indication: PULMONARY ARTERIAL HYPERTENSION
     Dosage: 10 MG, QD
     Route: 048
     Dates: start: 20140204
  5. DIGOXIN. [Concomitant]
     Active Substance: DIGOXIN
     Dosage: 0.125 MG, QD
     Dates: start: 2016
  6. ESTRADIOL. [Concomitant]
     Active Substance: ESTRADIOL
     Dosage: 1 MG, QD
     Dates: start: 20170101
  7. TRAMADOL. [Concomitant]
     Active Substance: TRAMADOL
  8. METFORMIN [Concomitant]
     Active Substance: METFORMIN HYDROCHLORIDE
  9. ADCIRCA [Concomitant]
     Active Substance: TADALAFIL
     Dosage: 40 MG, QD
     Dates: start: 2015
  10. REMODULIN [Suspect]
     Active Substance: TREPROSTINIL
     Dosage: UNK
     Route: 058
  11. FUROSEMIDE. [Concomitant]
     Active Substance: FUROSEMIDE
     Dosage: 40 MG, QD
     Dates: start: 2016
  12. REMODULIN [Suspect]
     Active Substance: TREPROSTINIL
     Dosage: 44 NG/KG, PER MIN
     Route: 058
     Dates: start: 20160507
  13. POTASSIUM [Concomitant]
     Active Substance: POTASSIUM
  14. PRAVASTATIN. [Concomitant]
     Active Substance: PRAVASTATIN
  15. METOPROLOL. [Concomitant]
     Active Substance: METOPROLOL
  16. MAGNESIUM OXIDE. [Concomitant]
     Active Substance: MAGNESIUM OXIDE
     Dosage: 400 MG, QD
     Dates: start: 201703
  17. REMODULIN [Suspect]
     Active Substance: TREPROSTINIL
     Indication: PRODUCT USED FOR UNKNOWN INDICATION
     Dosage: 0.084 ML/HR, UNK
     Route: 042
  18. REMODULIN [Suspect]
     Active Substance: TREPROSTINIL
     Dosage: 45.7 NG/KG, PER MIN
     Route: 042
  19. AZITHROMYCIN ANHYDROUS. [Concomitant]
     Active Substance: AZITHROMYCIN ANHYDROUS
  20. OXYGEN. [Concomitant]
     Active Substance: OXYGEN

REACTIONS (22)
  - Peripheral swelling [Unknown]
  - Transplant evaluation [Unknown]
  - Nausea [Unknown]
  - Hypotension [Unknown]
  - Respiratory failure [Recovering/Resolving]
  - Diarrhoea [Not Recovered/Not Resolved]
  - Clostridium difficile infection [Recovered/Resolved]
  - Dyspnoea [Not Recovered/Not Resolved]
  - Coronary artery bypass [Unknown]
  - Malaise [Unknown]
  - Oxygen saturation decreased [Unknown]
  - Asthenia [Not Recovered/Not Resolved]
  - Right-to-left cardiac shunt [Recovering/Resolving]
  - Hypoaesthesia oral [Unknown]
  - Vision blurred [Unknown]
  - Lung disorder [Unknown]
  - Fatigue [Not Recovered/Not Resolved]
  - Chills [Not Recovered/Not Resolved]
  - Pain in extremity [Unknown]
  - Somnolence [Unknown]
  - Pain in jaw [Unknown]
  - Hypoxia [Recovering/Resolving]

NARRATIVE: CASE EVENT DATE: 201703
